FAERS Safety Report 18365822 (Version 1)
Quarter: 2020Q4

REPORT INFORMATION
  Report Type: Spontaneous
  Country: US (occurrence: US)
  Receive Date: 20201009
  Receipt Date: 20201009
  Transmission Date: 20210114
  Serious: Yes (Life-Threatening, Hospitalization)
  Sender: FDA-Public Use
  Company Number: None

PATIENT
  Age: 39 Year
  Sex: Female
  Weight: 90.4 kg

DRUGS (2)
  1. SODIUM CHLORIDE 0.9% [Concomitant]
     Active Substance: SODIUM CHLORIDE
     Dates: start: 20200825, end: 20200825
  2. INJECTAFER [Suspect]
     Active Substance: FERRIC CARBOXYMALTOSE
     Indication: ANAEMIA
     Dosage: ?          OTHER FREQUENCY:ONCE;?
     Route: 042

REACTIONS (4)
  - Dyspnoea [None]
  - Urticaria [None]
  - Incorrect product administration duration [None]
  - Chest discomfort [None]

NARRATIVE: CASE EVENT DATE: 20200825
